FAERS Safety Report 9265548 (Version 2)
Quarter: 2013Q2

REPORT INFORMATION
  Report Type: Spontaneous
  Country: US (occurrence: US)
  Receive Date: 20130501
  Receipt Date: 20130506
  Transmission Date: 20140414
  Serious: No
  Sender: FDA-Public Use
  Company Number: US-009507513-1304USA016208

PATIENT
  Sex: Male

DRUGS (3)
  1. PROVENTIL [Suspect]
     Dosage: UNK
     Route: 055
     Dates: start: 201204
  2. PROVENTIL [Suspect]
     Dosage: UNK
  3. PROVENTIL [Suspect]
     Dosage: UNK

REACTIONS (3)
  - Drug ineffective [Unknown]
  - Product quality issue [Unknown]
  - Drug dose omission [Unknown]
